FAERS Safety Report 24305780 (Version 1)
Quarter: 2024Q3

REPORT INFORMATION
  Report Type: Spontaneous
  Country: CN (occurrence: CN)
  Receive Date: 20240911
  Receipt Date: 20240911
  Transmission Date: 20241017
  Serious: Yes (Other)
  Sender: TERSERA THERAPEUTICS
  Company Number: CN-AstraZeneca-2024A202414

PATIENT

DRUGS (3)
  1. GOSERELIN [Suspect]
     Active Substance: GOSERELIN
     Indication: Endocrine neoplasm malignant
     Dosage: 10.8 MILLIGRAM, QD
     Route: 058
     Dates: start: 20240827, end: 20240901
  2. ZOLADEX [Suspect]
     Active Substance: GOSERELIN ACETATE
     Indication: Endocrine neoplasm malignant
     Dosage: UNK
     Route: 065
  3. REZVILUTAMIDE [Concomitant]
     Active Substance: REZVILUTAMIDE
     Indication: Product used for unknown indication
     Dosage: UNK
     Route: 065

REACTIONS (1)
  - Myelosuppression [Recovering/Resolving]
